FAERS Safety Report 11437995 (Version 1)
Quarter: 2015Q3

REPORT INFORMATION
  Report Type: Report from Study
  Country: DE (occurrence: FR)
  Receive Date: 20150831
  Receipt Date: 20150831
  Transmission Date: 20151125
  Serious: Yes (Hospitalization)
  Sender: FDA-Public Use
  Company Number: DE-ACTELION-A-NJ2015-123301

PATIENT
  Age: 81 Year

DRUGS (1)
  1. VENTAVIS [Suspect]
     Active Substance: ILOPROST
     Indication: PULMONARY ARTERIAL HYPERTENSION
     Dosage: 5 MG, 6 X/DAY
     Route: 055
     Dates: start: 20140911

REACTIONS (1)
  - Urinary bladder haemorrhage [Unknown]

NARRATIVE: CASE EVENT DATE: 20150730
